FAERS Safety Report 23856769 (Version 1)
Quarter: 2024Q2

REPORT INFORMATION
  Report Type: Spontaneous
  Country: DZ (occurrence: DZ)
  Receive Date: 20240515
  Receipt Date: 20240515
  Transmission Date: 20240715
  Serious: Yes (Hospitalization)
  Sender: FDA-Public Use
  Company Number: DZ-BIOVITRUM-2024-DZ-004160

PATIENT
  Age: 5 Year
  Sex: Female

DRUGS (2)
  1. KINERET [Suspect]
     Active Substance: ANAKINRA
     Indication: Still^s disease
     Dosage: 80 MG/DAY
     Route: 058
  2. KINERET [Suspect]
     Active Substance: ANAKINRA
     Dosage: 100 MG/DAY
     Route: 058

REACTIONS (3)
  - Arthritis [Recovered/Resolved]
  - Rash [Recovered/Resolved]
  - Off label use [Unknown]

NARRATIVE: CASE EVENT DATE: 20240217
